FAERS Safety Report 4397745-9 (Version None)
Quarter: 2004Q2

REPORT INFORMATION
  Report Type: 
  Country: None (occurrence: None)
  Receive Date: 20040621
  Receipt Date: 20040308
  Transmission Date: 20050107
  Serious: Yes (Death)
  Sender: FDA-Public Use
  Company Number: USA-2004-0013633

PATIENT
  Age: 29 Year
  Sex: Male
  Weight: 85.7 kg

DRUGS (6)
  1. OXYCODONE HCL [Suspect]
  2. CARISOPRODOL [Suspect]
  3. COCAINE (COCAINE) [Suspect]
  4. MARIJUANA (CANNABIS) [Suspect]
  5. MEPROBAMATE [Suspect]
  6. CARBON MONOXIDE [Suspect]

REACTIONS (1)
  - MULTIPLE DRUG OVERDOSE ACCIDENTAL [None]
